FAERS Safety Report 5091578-6 (Version None)
Quarter: 2006Q3

REPORT INFORMATION
  Report Type: 
  Country: None (occurrence: None)
  Receive Date: 20060829
  Receipt Date: 20060823
  Transmission Date: 20061208
  Serious: Yes (Death, Life-Threatening)
  Sender: FDA-Public Use
  Company Number: US-AVENTIS-200617125US

PATIENT
  Sex: Male
  Weight: 116 kg

DRUGS (4)
  1. TAXOTERE [Suspect]
     Indication: PROSTATE CANCER
     Dates: start: 20060815, end: 20060815
  2. IMODIUM [Concomitant]
     Dosage: DOSE: UNK
  3. LASIX [Concomitant]
     Dosage: DOSE: UNK
  4. POTASSIUM [Concomitant]
     Dosage: DOSE: UNK

REACTIONS (6)
  - CARDIAC ARREST [None]
  - CARDIO-RESPIRATORY ARREST [None]
  - DEATH [None]
  - MALAISE [None]
  - MYOCARDIAL INFARCTION [None]
  - NAUSEA [None]
